FAERS Safety Report 15426530 (Version 2)
Quarter: 2018Q4

REPORT INFORMATION
  Report Type: Spontaneous
  Country: IN (occurrence: IN)
  Receive Date: 20180925
  Receipt Date: 20181001
  Transmission Date: 20190204
  Serious: Yes (Other)
  Sender: FDA-Public Use
  Company Number: IN-SHIRE-IN201836217

PATIENT

DRUGS (3)
  1. ADVATE [Suspect]
     Active Substance: ANTIHEMOPHILIC FACTOR, HUMAN RECOMBINANT
     Dosage: 1000 IU, UNK
     Route: 065
     Dates: start: 20180419
  2. ADVATE [Suspect]
     Active Substance: ANTIHEMOPHILIC FACTOR, HUMAN RECOMBINANT
     Indication: PRODUCT USED FOR UNKNOWN INDICATION
     Dosage: 750 IU, UNK
     Route: 065
     Dates: start: 20180225
  3. ADVATE [Suspect]
     Active Substance: ANTIHEMOPHILIC FACTOR, HUMAN RECOMBINANT
     Dosage: 750 IU, UNK
     Route: 065
     Dates: start: 20180420

REACTIONS (5)
  - Hypersensitivity [Recovered/Resolved]
  - Osteorrhagia [Unknown]
  - Rash erythematous [Unknown]
  - Vertigo [Unknown]
  - Drug ineffective [Unknown]
